FAERS Safety Report 15405947 (Version 3)
Quarter: 2019Q2

REPORT INFORMATION
  Report Type: Spontaneous
  Country: US (occurrence: US)
  Receive Date: 20180920
  Receipt Date: 20190607
  Transmission Date: 20190711
  Serious: No
  Sender: FDA-Public Use
  Company Number: US-PFIZER INC-2018377483

PATIENT
  Age: 10 Year
  Sex: Male

DRUGS (2)
  1. GENOTROPIN [Suspect]
     Active Substance: SOMATROPIN
     Indication: TURNER^S SYNDROME
     Dosage: 0.8 MG, DAILY
  2. GENOTROPIN [Suspect]
     Active Substance: SOMATROPIN
     Indication: GROWTH HORMONE DEFICIENCY
     Dosage: 1.1 MG, DAILY
     Route: 058
     Dates: start: 20160415, end: 201801

REACTIONS (9)
  - Vitamin D decreased [Unknown]
  - Red blood cell sedimentation rate increased [Unknown]
  - Decreased appetite [Unknown]
  - Arthralgia [Unknown]
  - Weight decreased [Unknown]
  - Blood immunoglobulin A increased [Unknown]
  - Blood thyroid stimulating hormone increased [Unknown]
  - Abdominal pain upper [Unknown]
  - Anaemia [Unknown]

NARRATIVE: CASE EVENT DATE: 20180105
